FAERS Safety Report 19855439 (Version 1)
Quarter: 2021Q3

REPORT INFORMATION
  Report Type: Report from Study
  Country: MX (occurrence: MX)
  Receive Date: 20210920
  Receipt Date: 20210920
  Transmission Date: 20211014
  Serious: Yes (Other)
  Sender: FDA-Public Use
  Company Number: NVSC2021MX212395

PATIENT
  Sex: Female

DRUGS (1)
  1. EXELON [Suspect]
     Active Substance: RIVASTIGMINE TARTRATE
     Indication: PRODUCT USED FOR UNKNOWN INDICATION
     Dosage: 1 DF, QD (4.6/5MG) (4.6 MG, QD (9.0 MG RIVASTIGMINE BASE (PATCH 5.0 (CM2)))
     Route: 003

REACTIONS (2)
  - Speech disorder [Unknown]
  - Dementia [Unknown]
